FAERS Safety Report 10192669 (Version 1)
Quarter: 2014Q2

REPORT INFORMATION
  Report Type: Spontaneous
  Country: US (occurrence: US)
  Receive Date: 20140523
  Receipt Date: 20140523
  Transmission Date: 20141212
  Serious: No
  Sender: FDA-Public Use
  Company Number: US-ASTRAZENECA-2013SE81657

PATIENT
  Sex: Female

DRUGS (4)
  1. PULMICORT FLEXHALER [Suspect]
     Dosage: 180 MCG, 2 PUFFS BID
     Route: 055
  2. PULMICORT FLEXHALER [Suspect]
     Dosage: 180 MCG, 3 PUFFS BID
     Route: 055
  3. PULMICORT FLEXHALER [Suspect]
     Dosage: 180 MCG, 2 PUFFS BID
     Route: 055
  4. PULMICORT FLEXHALER [Suspect]
     Dosage: ONLY ONE PUFFS
     Route: 055

REACTIONS (3)
  - Hypersensitivity [Unknown]
  - Intentional product misuse [Unknown]
  - Off label use [Recovered/Resolved]
